FAERS Safety Report 20771764 (Version 1)
Quarter: 2022Q2

REPORT INFORMATION
  Report Type: Other
  Country: DE (occurrence: None)
  Receive Date: 20220430
  Receipt Date: 20220430
  Transmission Date: 20220721
  Serious: No
  Sender: FDA-Public Use
  Company Number: DE-ROCHE-3081265

PATIENT
  Age: 38 Year
  Sex: Female

DRUGS (9)
  1. OCRELIZUMAB [Suspect]
     Active Substance: OCRELIZUMAB
     Indication: Relapsing multiple sclerosis
     Route: 042
     Dates: start: 20200817
  2. OCRELIZUMAB [Suspect]
     Active Substance: OCRELIZUMAB
     Route: 042
     Dates: start: 20200203, end: 20200217
  3. COMIRNATY [Concomitant]
     Active Substance: TOZINAMERAN
     Indication: Immunisation
     Route: 030
     Dates: start: 202202, end: 202202
  4. COMIRNATY [Concomitant]
     Active Substance: TOZINAMERAN
     Route: 030
     Dates: start: 20210713, end: 20210713
  5. COMIRNATY [Concomitant]
     Active Substance: TOZINAMERAN
     Route: 030
     Dates: start: 2021, end: 2021
  6. NATALIZUMAB [Concomitant]
     Active Substance: NATALIZUMAB
     Dates: start: 201103, end: 201207
  7. NATALIZUMAB [Concomitant]
     Active Substance: NATALIZUMAB
     Dates: start: 201612, end: 201912
  8. NATALIZUMAB [Concomitant]
     Active Substance: NATALIZUMAB
     Dates: start: 201306, end: 201601
  9. INTERFERON BETA-1B [Concomitant]
     Active Substance: INTERFERON BETA-1B
     Dates: start: 200903, end: 201102

REACTIONS (2)
  - Tooth disorder [Recovered/Resolved]
  - COVID-19 [Recovered/Resolved]

NARRATIVE: CASE EVENT DATE: 20211114
